FAERS Safety Report 12684018 (Version 6)
Quarter: 2018Q3

REPORT INFORMATION
  Report Type: Spontaneous
  Country: US (occurrence: US)
  Receive Date: 20160825
  Receipt Date: 20180727
  Transmission Date: 20181010
  Serious: No
  Sender: FDA-Public Use
  Company Number: US-ALLERGAN-1662934US

PATIENT
  Age: 46 Year
  Sex: Male
  Weight: 104.31 kg

DRUGS (5)
  1. ANDRODERM [Suspect]
     Active Substance: TESTOSTERONE
     Dosage: 2 MG, QD
     Route: 062
  2. INSULINE [Concomitant]
     Active Substance: INSULIN NOS
     Indication: DIABETES MELLITUS
     Dosage: UNK
  3. ANDRODERM [Suspect]
     Active Substance: TESTOSTERONE
     Indication: BLOOD TESTOSTERONE
     Dosage: 4 MG, UNK
     Route: 062
     Dates: start: 1998
  4. ANDRODERM [Suspect]
     Active Substance: TESTOSTERONE
     Indication: BLOOD TESTOSTERONE
     Dosage: 2 MG, UNK
     Route: 062
  5. ANDRODERM [Suspect]
     Active Substance: TESTOSTERONE
     Dosage: 4 MG, QD
     Route: 062

REACTIONS (14)
  - Blood glucose decreased [Recovered/Resolved]
  - Off label use [Unknown]
  - Apathy [Recovered/Resolved]
  - Insomnia [Recovered/Resolved]
  - Pruritus [Recovered/Resolved]
  - Swelling [Recovered/Resolved]
  - Application site pain [Recovered/Resolved]
  - Malaise [Unknown]
  - Application site erythema [Unknown]
  - Fatigue [Recovered/Resolved]
  - Product adhesion issue [Unknown]
  - Hyperhidrosis [Recovered/Resolved]
  - Weight decreased [Unknown]
  - Rash [Recovered/Resolved]

NARRATIVE: CASE EVENT DATE: 201604
